FAERS Safety Report 7647916-0 (Version None)
Quarter: 2011Q3

REPORT INFORMATION
  Report Type: 
  Country: None (occurrence: None)
  Receive Date: 20110801
  Receipt Date: 20110721
  Transmission Date: 20111222
  Serious: Yes (Hospitalization)
  Sender: FDA-Public Use
  Company Number: JP-ASTRAZENECA-2011SE41152

PATIENT
  Age: 52 Year
  Sex: Male

DRUGS (4)
  1. CRESTOR [Suspect]
     Route: 048
     Dates: start: 20110610, end: 20110701
  2. CRESTOR [Suspect]
     Indication: DYSLIPIDAEMIA
     Route: 048
     Dates: start: 20110601
  3. CEREKINON [Concomitant]
     Route: 048
     Dates: start: 20110610, end: 20110701
  4. LAC-B [Concomitant]
     Route: 048

REACTIONS (4)
  - C-REACTIVE PROTEIN INCREASED [None]
  - PYREXIA [None]
  - LIVER DISORDER [None]
  - HEPATIC FUNCTION ABNORMAL [None]
